FAERS Safety Report 5612099-5 (Version None)
Quarter: 2008Q1

REPORT INFORMATION
  Report Type: 
  Country: None (occurrence: None)
  Receive Date: 20080204
  Receipt Date: 20080128
  Transmission Date: 20080703
  Serious: Yes (Hospitalization)
  Sender: FDA-Public Use
  Company Number: PHHO2008FR01230

PATIENT
  Age: 63 Year
  Sex: Male

DRUGS (2)
  1. ZOLEDRONIC ACID [Suspect]
     Indication: METASTASES TO BONE
     Dosage: 4 MG EVERY 3 MONTHS
     Route: 042
     Dates: start: 20070112, end: 20080111
  2. CALCIUM CARBONATE W/VITAMIN D NOS [Concomitant]

REACTIONS (6)
  - ASTHENIA [None]
  - COMA [None]
  - FALL [None]
  - FATIGUE [None]
  - INTRACRANIAL HAEMATOMA [None]
  - SKULL FRACTURE [None]
